FAERS Safety Report 6816228-7 (Version None)
Quarter: 2010Q3

REPORT INFORMATION
  Report Type: 
  Country: None (occurrence: None)
  Receive Date: 20100701
  Receipt Date: 20100701
  Transmission Date: 20110219
  Serious: No
  Sender: FDA-Public Use
  Company Number: None

PATIENT
  Age: 61 Year
  Sex: Female
  Weight: 83.9154 kg

DRUGS (1)
  1. ZOLPIDEM [Suspect]
     Indication: INSOMNIA
     Dosage: 1 NIGHTLY PO
     Route: 048

REACTIONS (6)
  - MIDDLE INSOMNIA [None]
  - NIGHTMARE [None]
  - POLLAKIURIA [None]
  - PRODUCT SUBSTITUTION ISSUE [None]
  - SCREAMING [None]
  - SLEEP DISORDER [None]
